FAERS Safety Report 24162279 (Version 1)
Quarter: 2024Q3

REPORT INFORMATION
  Report Type: Spontaneous
  Country: CN (occurrence: CN)
  Receive Date: 20240801
  Receipt Date: 20240801
  Transmission Date: 20241017
  Serious: Yes (Other)
  Sender: PFIZER
  Company Number: CN-PFIZER INC-PV202400098843

PATIENT
  Age: 82 Year
  Sex: Female

DRUGS (3)
  1. SOLU-MEDROL [Suspect]
     Active Substance: METHYLPREDNISOLONE SODIUM SUCCINATE
     Indication: Intervertebral disc protrusion
     Dosage: 40 MG, 1X/DAY
     Route: 041
     Dates: start: 20240521, end: 20240529
  2. PIPERACILLIN SODIUM\TAZOBACTAM SODIUM [Suspect]
     Active Substance: PIPERACILLIN SODIUM\TAZOBACTAM SODIUM
     Indication: Enterobacter bacteraemia
     Dosage: 4.5 G, 3X/DAY
     Route: 041
     Dates: start: 20240602, end: 20240604
  3. MANNITOL [Suspect]
     Active Substance: MANNITOL
     Indication: Intervertebral disc protrusion
     Dosage: 100 ML, 2X/DAY
     Route: 041
     Dates: start: 20240521, end: 20240531

REACTIONS (2)
  - Hypokalaemia [Recovering/Resolving]
  - Off label use [Unknown]

NARRATIVE: CASE EVENT DATE: 20240521
